FAERS Safety Report 17954337 (Version 2)
Quarter: 2020Q3

REPORT INFORMATION
  Report Type: Spontaneous
  Country: US (occurrence: US)
  Receive Date: 20200629
  Receipt Date: 20200706
  Transmission Date: 20201103
  Serious: No
  Sender: FDA-Public Use
  Company Number: US-GW PHARMA-202006USGW02240

PATIENT

DRUGS (8)
  1. EPIDIOLEX [Suspect]
     Active Substance: CANNABIDIOL
     Indication: LENNOX-GASTAUT SYNDROME
     Dosage: 50 MILLIGRAM, QD (AT BEDTIME)
     Route: 048
     Dates: start: 202005, end: 2020
  2. EPIDIOLEX [Suspect]
     Active Substance: CANNABIDIOL
     Dosage: 150 MILLIGRAM, QD (0.5 ML IN THE MORNING AND 1 ML IN THE EVENING)
     Route: 048
     Dates: start: 2020, end: 2020
  3. EPIDIOLEX [Suspect]
     Active Substance: CANNABIDIOL
     Dosage: UNK (NOT TAKING IN AM JUST AT NIGHT FOR RIGHT NOW)
     Route: 048
     Dates: start: 2020
  4. EPIDIOLEX [Suspect]
     Active Substance: CANNABIDIOL
     Dosage: UNK (NOT TAKING IN AM JUST AT NIGHT FOR RIGHT NOW)
     Dates: start: 2020
  5. EPIDIOLEX [Suspect]
     Active Substance: CANNABIDIOL
     Dosage: 50 MILLIGRAM, BID
     Route: 048
     Dates: start: 2020, end: 2020
  6. EPIDIOLEX [Suspect]
     Active Substance: CANNABIDIOL
     Dosage: 50 MILLIGRAM, QD (AT BEDTIME)
     Dates: start: 202005, end: 2020
  7. EPIDIOLEX [Suspect]
     Active Substance: CANNABIDIOL
     Dosage: 50 MILLIGRAM, BID
     Dates: start: 2020, end: 2020
  8. EPIDIOLEX [Suspect]
     Active Substance: CANNABIDIOL
     Dosage: 150 MILLIGRAM, QD (0.5 ML IN THE MORNING AND 1 ML IN THE EVENING)
     Dates: start: 2020, end: 2020

REACTIONS (6)
  - Salivary hypersecretion [Unknown]
  - Insomnia [Unknown]
  - Incorrect route of product administration [Not Recovered/Not Resolved]
  - Muscle spasticity [Unknown]
  - Incorrect dose administered [Not Recovered/Not Resolved]
  - Product dose omission issue [Recovered/Resolved]

NARRATIVE: CASE EVENT DATE: 2020
